FAERS Safety Report 6356424-9 (Version None)
Quarter: 2009Q3

REPORT INFORMATION
  Report Type: 
  Country: None (occurrence: None)
  Receive Date: 20090911
  Receipt Date: 20090911
  Transmission Date: 20100115
  Serious: Yes (Life-Threatening)
  Sender: FDA-Public Use
  Company Number: None

PATIENT
  Age: 23 Year
  Sex: Male
  Weight: 63.6 kg

DRUGS (1)
  1. PROMETHAZINE [Suspect]
     Indication: NAUSEA
     Dosage: 1 6-8 HOURS ORAL
     Route: 048
     Dates: start: 20090816, end: 20090821

REACTIONS (13)
  - ABNORMAL BEHAVIOUR [None]
  - ABNORMAL SLEEP-RELATED EVENT [None]
  - AGGRESSION [None]
  - ALCOHOL USE [None]
  - AMNESIA [None]
  - DIZZINESS [None]
  - DYSPNOEA [None]
  - FEAR [None]
  - HALLUCINATION [None]
  - IMPRISONMENT [None]
  - MENTAL STATUS CHANGES [None]
  - MOOD ALTERED [None]
  - SOMNOLENCE [None]
